FAERS Safety Report 20721223 (Version 1)
Quarter: 2022Q2

REPORT INFORMATION
  Report Type: Spontaneous
  Country: US (occurrence: None)
  Receive Date: 20220418
  Receipt Date: 20220418
  Transmission Date: 20220721
  Serious: Yes (Hospitalization)
  Sender: FDA-Public Use
  Company Number: None

PATIENT
  Age: 60 Year
  Sex: Female

DRUGS (1)
  1. CAPECITABINE [Suspect]
     Active Substance: CAPECITABINE
     Dosage: FREQUENCY : TWICE A DAY;?
     Route: 048
     Dates: start: 202201

REACTIONS (9)
  - Nausea [None]
  - Fatigue [None]
  - Pain in extremity [None]
  - Pneumothorax [None]
  - Chest pain [None]
  - Pleural effusion [None]
  - Ascites [None]
  - Treatment delayed [None]
  - Catheter site pain [None]

NARRATIVE: CASE EVENT DATE: 20220330
